FAERS Safety Report 4290379-6 (Version None)
Quarter: 2004Q1

REPORT INFORMATION
  Report Type: 
  Country: None (occurrence: None)
  Receive Date: 20040209
  Receipt Date: 20040202
  Transmission Date: 20041129
  Serious: Yes (Other)
  Sender: FDA-Public Use
  Company Number: ENT 2004-0017

PATIENT
  Sex: Male

DRUGS (2)
  1. COMTAN [Suspect]
     Dosage: 800 MG (200 MG, 4 IN 1 D) ORAL
     Route: 048
  2. SINEMET CR [Concomitant]

REACTIONS (3)
  - DYSPHONIA [None]
  - HALLUCINATION [None]
  - SCREAMING [None]
